FAERS Safety Report 22394911 (Version 1)
Quarter: 2023Q2

REPORT INFORMATION
  Report Type: Spontaneous
  Country: US (occurrence: US)
  Receive Date: 20230601
  Receipt Date: 20230601
  Transmission Date: 20230721
  Serious: No
  Sender: FDA-Public Use
  Company Number: US-APIL-2311190US

PATIENT
  Age: 71 Year
  Sex: Male
  Weight: 96.615 kg

DRUGS (8)
  1. VRAYLAR [Suspect]
     Active Substance: CARIPRAZINE
     Indication: Obsessive-compulsive disorder
     Dosage: 1.5 MG, QD
     Route: 048
     Dates: start: 20230330, end: 20230407
  2. CELEXA [Concomitant]
     Active Substance: CITALOPRAM HYDROBROMIDE
     Indication: Obsessive-compulsive disorder
     Dosage: 40 MG, QHS
  3. JANUVIA [Concomitant]
     Active Substance: SITAGLIPTIN PHOSPHATE
     Indication: Diabetes mellitus
  4. TAMSULOSIN [Concomitant]
     Active Substance: TAMSULOSIN
  5. FUROSEMIDE [Concomitant]
     Active Substance: FUROSEMIDE
     Indication: Fluid retention
  6. METOCLOPRAMIDE [Concomitant]
     Active Substance: METOCLOPRAMIDE
     Indication: Gastrooesophageal reflux disease
  7. METOPROLOL [Concomitant]
     Active Substance: METOPROLOL
     Indication: Blood pressure abnormal
  8. ELIQUIS [Concomitant]
     Active Substance: APIXABAN
     Indication: Fabry^s disease

REACTIONS (4)
  - Hypervigilance [Not Recovered/Not Resolved]
  - Off label use [Unknown]
  - Hallucination [Not Recovered/Not Resolved]
  - Aggression [Not Recovered/Not Resolved]

NARRATIVE: CASE EVENT DATE: 20220101
